FAERS Safety Report 25100687 (Version 1)
Quarter: 2025Q1

REPORT INFORMATION
  Report Type: Spontaneous
  Country: US (occurrence: US)
  Receive Date: 20250320
  Receipt Date: 20250320
  Transmission Date: 20250409
  Serious: No
  Sender: PURDUE
  Company Number: US-PURDUE-USA-2025-0316132

PATIENT
  Age: 68 Year
  Sex: Male

DRUGS (1)
  1. HYDROCODONE BITARTRATE [Suspect]
     Active Substance: HYDROCODONE BITARTRATE
     Indication: Pain
     Dosage: TAKES EVERY THREE HOURS
     Route: 065

REACTIONS (2)
  - Stress [Unknown]
  - Product dose omission issue [Unknown]
